FAERS Safety Report 5940019-2 (Version None)
Quarter: 2008Q4

REPORT INFORMATION
  Report Type: 
  Country: None (occurrence: None)
  Receive Date: 20081104
  Receipt Date: 20081023
  Transmission Date: 20090506
  Serious: Yes (Other)
  Sender: FDA-Public Use
  Company Number: PHEH2008US09517

PATIENT
  Age: 78 Year
  Sex: Female

DRUGS (1)
  1. RECLAST [Suspect]
     Dosage: UNK, UNK
     Dates: start: 20071101

REACTIONS (6)
  - CHEILITIS [None]
  - GINGIVAL PAIN [None]
  - HYPOAESTHESIA [None]
  - ORAL FUNGAL INFECTION [None]
  - PRURITUS [None]
  - STOMATITIS [None]
